FAERS Safety Report 18641481 (Version 1)
Quarter: 2020Q4

REPORT INFORMATION
  Report Type: Spontaneous
  Country: US (occurrence: US)
  Receive Date: 20201218
  Receipt Date: 20201218
  Transmission Date: 20210114
  Serious: No
  Sender: FDA-Public Use
  Company Number: None

PATIENT
  Age: 46 Year
  Sex: Male
  Weight: 68 kg

DRUGS (1)
  1. SUCCINYLCHOLINE (SUCCINYLCHOLINE CHLORIDE 1000MG/VIL INJ) [Suspect]
     Active Substance: SUCCINYLCHOLINE CHLORIDE
     Indication: BRONCHOSCOPY
     Dates: start: 20201106, end: 20201106

REACTIONS (1)
  - Hyperthermia malignant [None]

NARRATIVE: CASE EVENT DATE: 20201106
